FAERS Safety Report 4772530-4 (Version None)
Quarter: 2005Q3

REPORT INFORMATION
  Report Type: 
  Country: None (occurrence: None)
  Receive Date: 20050914
  Receipt Date: 20041117
  Transmission Date: 20060218
  Serious: Yes (Death)
  Sender: FDA-Public Use
  Company Number: 163-20785-04110420

PATIENT
  Age: 61 Year
  Sex: Male

DRUGS (2)
  1. THALOMID [Suspect]
     Indication: NON-SMALL CELL LUNG CANCER
     Dosage: 200 MG, QHS, ORAL
     Route: 048
     Dates: start: 20040705, end: 20040923
  2. DOCETAXEL (DOCETAXEL) (UNKNOWN) [Suspect]
     Indication: NON-SMALL CELL LUNG CANCER
     Dosage: 30 MG/M2, DAYS 1, 8, 15 Q28 DAYS, UNKNOWN
     Dates: start: 20040712, end: 20040831

REACTIONS (2)
  - DEATH [None]
  - DISEASE PROGRESSION [None]
